FAERS Safety Report 6291259-7 (Version None)
Quarter: 2009Q3

REPORT INFORMATION
  Report Type: 
  Country: None (occurrence: None)
  Receive Date: 20090730
  Receipt Date: 20090723
  Transmission Date: 20100115
  Serious: Yes (Other)
  Sender: FDA-Public Use
  Company Number: US-JNJCH-2009016068

PATIENT
  Age: 68 Year
  Sex: Female
  Weight: 68 kg

DRUGS (2)
  1. DESITIN CREAMY DIAPER RASH [Suspect]
     Indication: RASH
     Dosage: TEXT:ALL OVER GENITAL AREA 2 TO 3 TIMES DAILY
     Route: 061
  2. CHEMOTHERAPY NOS [Concomitant]
     Indication: NEOPLASM MALIGNANT
     Dosage: TEXT:UNSPECIFIED
     Route: 065

REACTIONS (3)
  - APPLICATION SITE EROSION [None]
  - APPLICATION SITE ERYTHEMA [None]
  - OFF LABEL USE [None]
